FAERS Safety Report 18494416 (Version 1)
Quarter: 2020Q4

REPORT INFORMATION
  Report Type: Spontaneous
  Country: ES (occurrence: ES)
  Receive Date: 20201112
  Receipt Date: 20201112
  Transmission Date: 20210114
  Serious: Yes (Hospitalization)
  Sender: FDA-Public Use
  Company Number: ES-TEVA-2020-ES-1847237

PATIENT
  Age: 67 Year
  Sex: Male

DRUGS (6)
  1. ESOMEPRAZOL 40 MG CAPSULA [Concomitant]
  2. CELECOXIB 200 MG CAPSULA [Suspect]
     Active Substance: CELECOXIB
     Indication: ARTHRALGIA
     Dosage: 200 MG
     Route: 048
     Dates: start: 20191210, end: 20200424
  3. APIDRA 100 UNIDADES/ML,SOLOSTAR SOLUCION INYECTABLE EN PLUMA PRECARGAD [Concomitant]
  4. ACIDO ACETILSALICILICO 100 MG COMPRIMIDO [Concomitant]
  5. ENALAPRIL 10 MG COMPRIMIDO [Concomitant]
     Active Substance: ENALAPRIL
  6. HEIPRAM 20 MG COMPRIMIDOS RECUBIERTOS CON PELICULA EFG [Concomitant]

REACTIONS (4)
  - Proteinuria [Recovered/Resolved]
  - Vasculitis [Recovered/Resolved]
  - Acute kidney injury [Recovered/Resolved]
  - Haematuria [Recovered/Resolved]

NARRATIVE: CASE EVENT DATE: 20200424
